FAERS Safety Report 19073956 (Version 2)
Quarter: 2025Q4

REPORT INFORMATION
  Report Type: Spontaneous
  Country: CA (occurrence: CA)
  Receive Date: 20210330
  Receipt Date: 20251202
  Transmission Date: 20260118
  Serious: Yes (Life-Threatening, Hospitalization)
  Sender: ALEXION PHARMACEUTICALS
  Company Number: 2021A219679

PATIENT
  Age: 87 Year
  Sex: Female

DRUGS (5)
  1. ACALABRUTINIB [Suspect]
     Active Substance: ACALABRUTINIB
     Dosage: UNKNOWN
  2. NIFEDIPINE [Concomitant]
     Active Substance: NIFEDIPINE
  3. CEFUROXIME [Concomitant]
     Active Substance: CEFUROXIME
  4. CITALOPRAM [Concomitant]
     Active Substance: CITALOPRAM
  5. ZOPICLONE [Concomitant]
     Active Substance: ZOPICLONE

REACTIONS (2)
  - Aortic dissection [Recovered/Resolved]
  - Penetrating aortic ulcer [Recovered/Resolved]

NARRATIVE: CASE EVENT DATE: 20201012
